FAERS Safety Report 14412682 (Version 2)
Quarter: 2018Q1

REPORT INFORMATION
  Report Type: Spontaneous
  Country: CH (occurrence: CH)
  Receive Date: 20180119
  Receipt Date: 20180122
  Transmission Date: 20180509
  Serious: Yes (Hospitalization)
  Sender: FDA-Public Use
  Company Number: CH-PFIZER INC-2018021638

PATIENT
  Age: 39 Year
  Sex: Male

DRUGS (5)
  1. TIENAM [Suspect]
     Active Substance: CILASTATIN SODIUM\IMIPENEM
     Dosage: 1 DF (500/500 MG), EVERY 6 HOURS
     Route: 041
     Dates: start: 20171013, end: 20171014
  2. CLINDAMYCINE SANDOZ [Suspect]
     Active Substance: CLINDAMYCIN
     Dosage: 600 MG, EVERY 8 HOURS
     Route: 041
     Dates: start: 20171013, end: 20171016
  3. TAVANIC [Suspect]
     Active Substance: LEVOFLOXACIN
     Dosage: 500 MG, 2X/DAY
     Route: 048
     Dates: start: 20171017, end: 20171018
  4. CIPROFLOXACIN SPIRIG HC [Suspect]
     Active Substance: CIPROFLOXACIN HYDROCHLORIDE
     Dosage: 500 MG, 2X/DAY
     Route: 048
     Dates: start: 20171014, end: 20171016
  5. DALACIN C [Suspect]
     Active Substance: CLINDAMYCIN PHOSPHATE
     Indication: DERMO-HYPODERMITIS
     Dosage: UNK
     Route: 048
     Dates: start: 20171010, end: 20171013

REACTIONS (2)
  - Dermatitis allergic [Recovering/Resolving]
  - Rash maculo-papular [Recovering/Resolving]

NARRATIVE: CASE EVENT DATE: 20171013
